FAERS Safety Report 20583600 (Version 4)
Quarter: 2022Q3

REPORT INFORMATION
  Report Type: Report from Study
  Country: CA (occurrence: CA)
  Receive Date: 20220311
  Receipt Date: 20220801
  Transmission Date: 20221027
  Serious: Yes (Life-Threatening, Hospitalization, Disabling, Other)
  Sender: FDA-Public Use
  Company Number: CA-MYLANLABS-2022M1018881

PATIENT
  Sex: Female

DRUGS (1)
  1. HULIO [Suspect]
     Active Substance: ADALIMUMAB-FKJP
     Indication: Rheumatoid arthritis
     Dosage: 40 MILLIGRAM, Q2W (BIWEEKLY)
     Route: 058
     Dates: start: 202111

REACTIONS (14)
  - Rheumatoid arthritis [Not Recovered/Not Resolved]
  - Joint noise [Unknown]
  - Arthralgia [Unknown]
  - Foot deformity [Unknown]
  - Blister [Unknown]
  - Haemorrhage [Unknown]
  - Bacterial infection [Not Recovered/Not Resolved]
  - Fungal infection [Not Recovered/Not Resolved]
  - Cellulitis [Unknown]
  - Headache [Unknown]
  - Dyspnoea [Unknown]
  - Pharyngeal swelling [Unknown]
  - Peripheral swelling [Unknown]
  - Oropharyngeal pain [Unknown]
